FAERS Safety Report 24956544 (Version 1)
Quarter: 2025Q1

REPORT INFORMATION
  Report Type: Report from Study
  Country: US (occurrence: US)
  Receive Date: 20250211
  Receipt Date: 20250211
  Transmission Date: 20250408
  Serious: Yes (Other)
  Sender: NOVARTIS
  Company Number: US-002147023-NVSC2025US021785

PATIENT
  Sex: Male

DRUGS (1)
  1. KESIMPTA [Suspect]
     Active Substance: OFATUMUMAB
     Indication: Product used for unknown indication
     Route: 065
     Dates: start: 20241228

REACTIONS (15)
  - Loss of consciousness [Unknown]
  - Visual impairment [Unknown]
  - Decreased appetite [Unknown]
  - Dizziness [Unknown]
  - Clumsiness [Unknown]
  - Ill-defined disorder [Unknown]
  - Gait disturbance [Unknown]
  - Weight increased [Unknown]
  - Cognitive disorder [Unknown]
  - Memory impairment [Unknown]
  - Asthenia [Unknown]
  - Fatigue [Unknown]
  - Tongue disorder [Unknown]
  - Dysarthria [Unknown]
  - Helplessness [Unknown]
